FAERS Safety Report 5777993-3 (Version None)
Quarter: 2008Q2

REPORT INFORMATION
  Report Type: 
  Country: None (occurrence: None)
  Receive Date: 20080617
  Receipt Date: 20080602
  Transmission Date: 20081010
  Serious: Yes (Hospitalization)
  Sender: FDA-Public Use
  Company Number: 08-000882

PATIENT
  Age: 24 Year
  Sex: Female
  Weight: 86.2 kg

DRUGS (2)
  1. FEMCON FE [Suspect]
     Indication: CONTRACEPTION
     Dosage: 0.4MG/35MCG, QD, ORAL
     Route: 048
     Dates: start: 20080512
  2. FEMCON FE [Suspect]
     Indication: HORMONE LEVEL ABNORMAL
     Dosage: 0.4MG/35MCG, QD, ORAL
     Route: 048
     Dates: start: 20080512

REACTIONS (2)
  - GASTRITIS [None]
  - METRORRHAGIA [None]
